FAERS Safety Report 4934715-3 (Version None)
Quarter: 2006Q1

REPORT INFORMATION
  Report Type: 
  Country: None (occurrence: None)
  Receive Date: 20060307
  Receipt Date: 20051019
  Transmission Date: 20060701
  Serious: Yes (Hospitalization, Other)
  Sender: FDA-Public Use
  Company Number: US-MERCK-0510USA08115

PATIENT
  Age: 56 Year
  Sex: Female
  Weight: 85 kg

DRUGS (21)
  1. VIOXX [Suspect]
     Indication: ARTHRITIS
     Route: 048
     Dates: start: 20040501, end: 20040901
  2. VIOXX [Suspect]
     Indication: ARTHRALGIA
     Route: 048
     Dates: start: 20040501, end: 20040901
  3. XANAX [Concomitant]
     Indication: BLOOD PRESSURE
     Route: 065
     Dates: start: 19850101
  4. GUAIFENESIN AND PSEUDOEPHEDRINE HYDROCHLORIDE [Concomitant]
     Indication: SINUS DISORDER
     Route: 048
  5. FLEXERIL [Concomitant]
     Indication: MUSCLE SPASMS
     Route: 048
  6. DIOVAN [Concomitant]
     Indication: HYPERTENSION
     Route: 065
     Dates: start: 19850101
  7. KLOR-CON [Concomitant]
     Route: 048
  8. METFORMIN HYDROCHLORIDE [Concomitant]
     Indication: DIABETES MELLITUS
     Route: 065
     Dates: start: 20020101
  9. ESTRADIOL [Concomitant]
     Indication: HOT FLUSH
     Route: 065
     Dates: start: 20000101
  10. FLONASE [Concomitant]
     Indication: SINUS DISORDER
     Route: 065
  11. LASIX [Concomitant]
     Route: 065
     Dates: start: 19850101
  12. DURATUSS [Concomitant]
     Indication: SINUS DISORDER
     Route: 065
  13. ALPRAZOLAM [Concomitant]
     Route: 065
     Dates: start: 19850101
  14. HYDROCHLOROTHIAZIDE [Concomitant]
     Indication: BLOOD PRESSURE
     Route: 065
  15. GLIPIZIDE [Concomitant]
     Indication: DIABETES MELLITUS
     Route: 065
  16. ZOCOR [Concomitant]
     Indication: BLOOD CHOLESTEROL
     Route: 065
     Dates: start: 20041101
  17. SINGULAIR [Concomitant]
     Indication: ASTHMA
     Route: 065
  18. FAMOTIDINE [Concomitant]
     Indication: GALLBLADDER DISORDER
     Route: 065
  19. ALBUTEROL [Concomitant]
     Indication: ASTHMA
     Route: 065
  20. ASPIRIN [Concomitant]
     Route: 065
     Dates: start: 20041101
  21. ZESTRIL [Concomitant]
     Route: 065
     Dates: start: 19850101

REACTIONS (2)
  - MYOCARDIAL INFARCTION [None]
  - POST PROCEDURAL HAEMORRHAGE [None]
